FAERS Safety Report 12472070 (Version 1)
Quarter: 2016Q2

REPORT INFORMATION
  Report Type: Spontaneous
  Country: US (occurrence: None)
  Receive Date: 20160615
  Receipt Date: 20160615
  Transmission Date: 20160815
  Serious: Yes (Hospitalization)
  Sender: FDA-Public Use
  Company Number: None

PATIENT
  Age: 83 Year
  Sex: Female
  Weight: 73.9 kg

DRUGS (5)
  1. CITRACAL +D [Concomitant]
  2. LISINOPRIL. [Concomitant]
     Active Substance: LISINOPRIL
  3. MVI [Concomitant]
     Active Substance: VITAMINS
  4. LOVASTATIN. [Concomitant]
     Active Substance: LOVASTATIN
  5. ECOTRIN [Suspect]
     Active Substance: ASPIRIN
     Indication: CORONARY ARTERY DISEASE
     Dosage: CHRONIC
     Route: 048

REACTIONS (5)
  - Hypotension [None]
  - Ulcer haemorrhage [None]
  - Dieulafoy^s vascular malformation [None]
  - Gastritis [None]
  - Haemorrhagic anaemia [None]

NARRATIVE: CASE EVENT DATE: 20151002
